FAERS Safety Report 15093686 (Version 1)
Quarter: 2018Q2

REPORT INFORMATION
  Report Type: Report from Study
  Country: FR (occurrence: FR)
  Receive Date: 20180629
  Receipt Date: 20180629
  Transmission Date: 20180711
  Serious: Yes (Hospitalization, Other)
  Sender: FDA-Public Use
  Company Number: FR-SHIRE-FR201802011

PATIENT

DRUGS (7)
  1. PEGASPARGASE [Suspect]
     Active Substance: PEGASPARGASE
     Indication: ACUTE LYMPHOCYTIC LEUKAEMIA
     Dosage: 1050 IU, UNK
     Route: 042
     Dates: start: 20170306, end: 20170504
  2. VINCRISTINE [Suspect]
     Active Substance: VINCRISTINE
     Indication: ACUTE LYMPHOCYTIC LEUKAEMIA
     Dosage: 1.2 MG, UNK
     Route: 042
     Dates: start: 20170227, end: 20170504
  3. 6-MERCAPTOPURINE MONOHYDRATE [Suspect]
     Active Substance: MERCAPTOPURINE
     Indication: ACUTE LYMPHOCYTIC LEUKAEMIA
     Dosage: 44 MG, UNK
     Route: 048
     Dates: start: 20170227, end: 20170518
  4. BACTRIM [Concomitant]
     Active Substance: SULFAMETHOXAZOLE\TRIMETHOPRIM
     Indication: ANTIBIOTIC PROPHYLAXIS
  5. METHOTREXATE (METHOTREXATE SODIUM) [Suspect]
     Active Substance: METHOTREXATE SODIUM
     Indication: ACUTE LYMPHOCYTIC LEUKAEMIA
     Dosage: 22.5 MG, UNK
     Route: 048
     Dates: start: 20170306, end: 20170515
  6. METHOTREXATE (METHOTREXATE SODIUM) [Suspect]
     Active Substance: METHOTREXATE SODIUM
     Dosage: 12 MG, UNK
     Route: 037
     Dates: start: 20170228, end: 20170428
  7. DEXAMETHASONE. [Suspect]
     Active Substance: DEXAMETHASONE
     Indication: ACUTE LYMPHOCYTIC LEUKAEMIA
     Dosage: 5 MG, UNK
     Route: 048
     Dates: start: 20170227, end: 20170501

REACTIONS (2)
  - General physical health deterioration [Recovered/Resolved]
  - Pyrexia [Recovered/Resolved]

NARRATIVE: CASE EVENT DATE: 20170423
